FAERS Safety Report 12187558 (Version 3)
Quarter: 2016Q2

REPORT INFORMATION
  Report Type: Report from Study
  Country: BR (occurrence: BR)
  Receive Date: 20160317
  Receipt Date: 20160428
  Transmission Date: 20160815
  Serious: Yes (Hospitalization)
  Sender: FDA-Public Use
  Company Number: BR-ROCHE-1727170

PATIENT
  Sex: Male
  Weight: 61 kg

DRUGS (5)
  1. PULMOZYME [Suspect]
     Active Substance: DORNASE ALFA
     Indication: CYSTIC FIBROSIS
     Route: 065
     Dates: start: 2006
  2. CREON [Concomitant]
     Active Substance: PANCRELIPASE AMYLASE\PANCRELIPASE LIPASE\PANCRELIPASE PROTEASE
     Dosage: WITH ALIMENTATION
     Route: 065
  3. SODIUM CHLORIDE. [Concomitant]
     Active Substance: SODIUM CHLORIDE
     Route: 065
  4. FLUIMUCIL [Concomitant]
     Active Substance: ACETYLCYSTEINE
  5. TOBRAMYCIN INHALATION [Concomitant]
     Route: 065

REACTIONS (11)
  - Bacterial disease carrier [Recovered/Resolved]
  - Secretion discharge [Unknown]
  - Decreased appetite [Unknown]
  - Pyrexia [Unknown]
  - Lip dry [Recovered/Resolved]
  - Cough [Unknown]
  - Medication error [Unknown]
  - Malaise [Not Recovered/Not Resolved]
  - Lip injury [Recovered/Resolved]
  - Weight increased [Unknown]
  - Sluggishness [Unknown]
